FAERS Safety Report 13945100 (Version 1)
Quarter: 2017Q3

REPORT INFORMATION
  Report Type: Spontaneous
  Country: US (occurrence: US)
  Receive Date: 20170907
  Receipt Date: 20170907
  Transmission Date: 20171128
  Serious: No
  Sender: FDA-Public Use
  Company Number: US-ROCHE-1385429

PATIENT
  Sex: Male

DRUGS (3)
  1. METHYLPREDNISOLONE. [Concomitant]
     Active Substance: METHYLPREDNISOLONE
  2. IDELALISIB [Concomitant]
     Active Substance: IDELALISIB
     Route: 048
  3. RITUXAN [Suspect]
     Active Substance: RITUXIMAB
     Indication: CHRONIC LYMPHOCYTIC LEUKAEMIA
     Route: 042
     Dates: end: 201408

REACTIONS (7)
  - Chills [Unknown]
  - Pyrexia [Unknown]
  - Rash [Unknown]
  - Constipation [Unknown]
  - Liver function test abnormal [Unknown]
  - Abdominal distension [Unknown]
  - Skin reaction [Unknown]
